FAERS Safety Report 16041353 (Version 1)
Quarter: 2019Q1

REPORT INFORMATION
  Report Type: Spontaneous
  Country: US (occurrence: US)
  Receive Date: 20190306
  Receipt Date: 20190306
  Transmission Date: 20190418
  Serious: No
  Sender: FDA-Public Use
  Company Number: US-AKORN PHARMACEUTICALS-2018AKN02051

PATIENT
  Age: 14 Year
  Sex: Male
  Weight: 61.22 kg

DRUGS (4)
  1. MYORISAN [Suspect]
     Active Substance: ISOTRETINOIN
     Dosage: 40 MG, 1X/DAY
     Route: 048
     Dates: start: 20181120, end: 20181213
  2. MYORISAN [Suspect]
     Active Substance: ISOTRETINOIN
     Indication: ACNE CYSTIC
     Dosage: 20 MG, 1X/DAY IN THE MORNING
     Route: 048
     Dates: start: 201810, end: 20181120
  3. MYORISAN [Suspect]
     Active Substance: ISOTRETINOIN
     Indication: ACNE CYSTIC
     Dosage: 40 MG, 1X/DAY
     Route: 048
     Dates: start: 20180824, end: 201810
  4. MYORISAN [Suspect]
     Active Substance: ISOTRETINOIN
     Dosage: 40 MG, 1X/DAY AT NIGHT
     Route: 048
     Dates: start: 201810, end: 20181120

REACTIONS (2)
  - Off label use [Recovered/Resolved]
  - Acne [Unknown]

NARRATIVE: CASE EVENT DATE: 201808
